FAERS Safety Report 7487748-X (Version None)
Quarter: 2011Q2

REPORT INFORMATION
  Report Type: 
  Country: None (occurrence: None)
  Receive Date: 20110518
  Receipt Date: 20110512
  Transmission Date: 20111010
  Serious: Yes (Death, Other)
  Sender: FDA-Public Use
  Company Number: PHHY2011US41444

PATIENT
  Sex: Male

DRUGS (1)
  1. MYFORTIC [Suspect]
     Indication: RENAL TRANSPLANT
     Dosage: UNK
     Dates: start: 20070915, end: 20110214

REACTIONS (3)
  - PANCREATIC CARCINOMA METASTATIC [None]
  - PANCREATIC DUCT DILATATION [None]
  - JAUNDICE CHOLESTATIC [None]
